FAERS Safety Report 18087612 (Version 2)
Quarter: 2020Q3

REPORT INFORMATION
  Report Type: Spontaneous
  Country: GB (occurrence: GB)
  Receive Date: 20200729
  Receipt Date: 20200902
  Transmission Date: 20201103
  Serious: Yes (Hospitalization, Other)
  Sender: FDA-Public Use
  Company Number: GB-PFIZER INC-2020285010

PATIENT
  Age: 74 Year
  Sex: Female
  Weight: 89 kg

DRUGS (6)
  1. QUININE [Concomitant]
     Active Substance: QUININE
     Dosage: 1 DF, 1X/DAY (AT NIGHT)
     Dates: start: 20180206
  2. LORATADINE. [Concomitant]
     Active Substance: LORATADINE
     Dosage: 1 DF, 1X/DAY
     Dates: start: 20200622
  3. FELODIPINE. [Concomitant]
     Active Substance: FELODIPINE
     Dosage: 1 DF, 1X/DAY
     Dates: start: 20200330, end: 20200512
  4. LOSARTAN POTASSIUM. [Suspect]
     Active Substance: LOSARTAN POTASSIUM
     Dosage: 50 MG, DAILY
     Dates: start: 20200512
  5. DOXYCYCLINE MONOHYDRATE [Suspect]
     Active Substance: DOXYCYCLINE
     Dosage: 100 MG, TWO NOW THEN ONE DAILY
     Dates: start: 20200629
  6. AMITRIPTYLINE HYDROCHLORIDE. [Concomitant]
     Active Substance: AMITRIPTYLINE HYDROCHLORIDE
     Indication: SCIATICA
     Dosage: 1 DF, 1X/DAY (AT NIGHT)
     Dates: start: 20200115

REACTIONS (2)
  - Rash [Recovering/Resolving]
  - Swollen tongue [Recovering/Resolving]

NARRATIVE: CASE EVENT DATE: 20200707
